FAERS Safety Report 7238457-3 (Version None)
Quarter: 2011Q1

REPORT INFORMATION
  Report Type: 
  Country: None (occurrence: None)
  Receive Date: 20110119
  Receipt Date: 20110119
  Transmission Date: 20110831
  Serious: Yes (Hospitalization)
  Sender: FDA-Public Use
  Company Number: None

PATIENT
  Age: 81 Year
  Sex: Female
  Weight: 90.9 kg

DRUGS (1)
  1. CEFUROXIME [Suspect]
     Indication: BRONCHITIS
     Dosage: 1.5 GRAMS EVERY 8 HOURS IV DRIP
     Route: 041
     Dates: start: 20101216, end: 20101217

REACTIONS (3)
  - ANXIETY [None]
  - FLUSHING [None]
  - BRONCHITIS [None]
